FAERS Safety Report 14885673 (Version 1)
Quarter: 2018Q2

REPORT INFORMATION
  Report Type: Spontaneous
  Country: ZA (occurrence: ZA)
  Receive Date: 20180511
  Receipt Date: 20180511
  Transmission Date: 20180711
  Serious: Yes (Death, Other)
  Sender: FDA-Public Use
  Company Number: ZA-009507513-1805ZAF002032

PATIENT
  Sex: Female

DRUGS (1)
  1. CANCIDAS [Suspect]
     Active Substance: CASPOFUNGIN ACETATE

REACTIONS (1)
  - Death [Fatal]
